FAERS Safety Report 4323976-X (Version None)
Quarter: 2004Q1

REPORT INFORMATION
  Report Type: 
  Country: None (occurrence: None)
  Receive Date: 20040326
  Receipt Date: 20031201
  Transmission Date: 20041129
  Serious: No
  Sender: FDA-Public Use
  Company Number: US-GLAXOSMITHKLINE-A0441721A

PATIENT
  Age: 77 Year
  Sex: Male

DRUGS (3)
  1. ADVAIR DISKUS 100/50 [Suspect]
     Route: 055
  2. COMBIVENT [Suspect]
     Route: 055
  3. VASOTEC [Suspect]
     Route: 065

REACTIONS (5)
  - DYSPNOEA [None]
  - INTERMITTENT CLAUDICATION [None]
  - LACRIMATION INCREASED [None]
  - RASH [None]
  - RHINORRHOEA [None]
